FAERS Safety Report 5885652-1 (Version None)
Quarter: 2008Q3

REPORT INFORMATION
  Report Type: 
  Country: None (occurrence: None)
  Receive Date: 20080912
  Receipt Date: 20080829
  Transmission Date: 20090109
  Serious: Yes (Congenital Anomaly)
  Sender: FDA-Public Use
  Company Number: 2008AL010240

PATIENT
  Sex: Female

DRUGS (4)
  1. PHENYTOIN ORAL SUSPESION [Suspect]
     Indication: DRUG EXPOSURE DURING PREGNANCY
     Dosage: 400 MG;QD;TRPL
     Route: 064
  2. VIGABATRIN [Concomitant]
  3. EPILIM [Concomitant]
  4. FOLIC ACID [Concomitant]

REACTIONS (19)
  - APGAR SCORE ABNORMAL [None]
  - CARDIAC MURMUR [None]
  - CARDIAC SEPTAL DEFECT [None]
  - COGNITIVE DISORDER [None]
  - DEAFNESS [None]
  - DEVELOPMENTAL DELAY [None]
  - DISTURBANCE IN ATTENTION [None]
  - DYSMORPHISM [None]
  - FINE MOTOR DELAY [None]
  - FOETAL ANTICONVULSANT SYNDROME [None]
  - FOOT DEFORMITY [None]
  - FRUSTRATION [None]
  - GRAND MAL CONVULSION [None]
  - HYPERMETROPIA [None]
  - LOWER RESPIRATORY TRACT INFECTION [None]
  - OTITIS MEDIA [None]
  - SPEECH DISORDER DEVELOPMENTAL [None]
  - SPINAL HAEMANGIOMA [None]
  - STRABISMUS [None]
